FAERS Safety Report 19788055 (Version 1)
Quarter: 2021Q3

REPORT INFORMATION
  Report Type: Spontaneous
  Country: US (occurrence: US)
  Receive Date: 20210903
  Receipt Date: 20210903
  Transmission Date: 20211014
  Serious: No
  Sender: FDA-Public Use
  Company Number: US-BRAINTREE LABORATORIES, INC.-2021BTE00533

PATIENT
  Age: 74 Year
  Sex: Female

DRUGS (5)
  1. FISH OIL [Concomitant]
     Active Substance: FISH OIL
  2. VITAMIN D [Concomitant]
     Active Substance: VITAMIN D NOS
  3. SUTAB [Suspect]
     Active Substance: MAGNESIUM SULFATE\POTASSIUM CHLORIDE\SODIUM SULFATE
     Indication: COLONOSCOPY
     Dosage: 1 X 12 TABLETS, 1X
     Route: 048
     Dates: start: 20210628
  4. BIOFLEX VITAMIN [Concomitant]
  5. LATANOPROST. [Concomitant]
     Active Substance: LATANOPROST

REACTIONS (2)
  - Hyperhidrosis [Recovered/Resolved]
  - Vomiting [Recovered/Resolved]

NARRATIVE: CASE EVENT DATE: 20210628
